FAERS Safety Report 5252516-6 (Version None)
Quarter: 2007Q1

REPORT INFORMATION
  Report Type: 
  Country: None (occurrence: None)
  Receive Date: 20070301
  Receipt Date: 20070122
  Transmission Date: 20070707
  Serious: No
  Sender: FDA-Public Use
  Company Number: US-BRISTOL-MYERS SQUIBB COMPANY-13652359

PATIENT
  Age: 65 Year
  Sex: Female

DRUGS (3)
  1. ERBITUX [Suspect]
     Indication: NEOPLASM MALIGNANT
     Dates: start: 20070103
  2. CARBOPLATIN [Concomitant]
  3. RADIATION THERAPY [Concomitant]

REACTIONS (1)
  - MUCOSAL INFLAMMATION [None]
